FAERS Safety Report 7277427-6 (Version None)
Quarter: 2011Q1

REPORT INFORMATION
  Report Type: 
  Country: None (occurrence: None)
  Receive Date: 20110207
  Receipt Date: 20110126
  Transmission Date: 20110831
  Serious: Yes (Hospitalization)
  Sender: FDA-Public Use
  Company Number: DK-NOVOPROD-316077

PATIENT
  Age: 42 Year
  Sex: Male
  Weight: 125 kg

DRUGS (5)
  1. VENLAFAXINE [Concomitant]
     Dosage: 225 MG, UNK
  2. SPIRONOLACTONE [Concomitant]
     Dosage: 25 MG, UNK
  3. VICTOZA [Suspect]
     Dosage: 0.6 MG, QD
     Route: 058
  4. VICTOZA [Suspect]
     Dosage: 1.2 MG, QD
     Dates: end: 20101005
  5. VICTOZA [Suspect]
     Indication: TYPE 2 DIABETES MELLITUS
     Dosage: 0.6 MG, QD
     Dates: start: 20100920

REACTIONS (6)
  - NAUSEA [None]
  - FLATULENCE [None]
  - HEADACHE [None]
  - DEHYDRATION [None]
  - DIARRHOEA [None]
  - FATIGUE [None]
